FAERS Safety Report 8283826-6 (Version None)
Quarter: 2012Q2

REPORT INFORMATION
  Report Type: 
  Country: None (occurrence: None)
  Receive Date: 20120413
  Receipt Date: 20110920
  Transmission Date: 20120825
  Serious: No
  Sender: FDA-Public Use
  Company Number: US-ASTRAZENECA-2011SE56719

PATIENT
  Age: 67 Year
  Sex: Female

DRUGS (3)
  1. ALKA SELTZER [Concomitant]
  2. PEPCID [Concomitant]
  3. NEXIUM [Suspect]
     Route: 048

REACTIONS (4)
  - DYSPEPSIA [None]
  - APHAGIA [None]
  - DRUG DOSE OMISSION [None]
  - WEIGHT DECREASED [None]
